FAERS Safety Report 8514671-1 (Version None)
Quarter: 2012Q3

REPORT INFORMATION
  Report Type: 
  Country: None (occurrence: None)
  Receive Date: 20120717
  Receipt Date: 20120709
  Transmission Date: 20120928
  Serious: Yes (Death, Hospitalization, Other)
  Sender: FDA-Public Use
  Company Number: TW-CELGENEUS-153-21880-12020671

PATIENT
  Sex: Female
  Weight: 52.1 kg

DRUGS (20)
  1. DEXAMETHASONE [Suspect]
     Dosage: 2.8571 MILLIGRAM
     Route: 065
     Dates: start: 20120203, end: 20120210
  2. DEXAMETHASONE [Suspect]
     Route: 065
     Dates: start: 20120202
  3. AUGMENTIN '125' [Concomitant]
     Dosage: 2 TABLET
     Route: 048
     Dates: start: 20110221, end: 20110228
  4. REVLIMID [Suspect]
     Dosage: 10 MILLIGRAM
     Route: 048
     Dates: start: 20120504, end: 20120524
  5. DEXAMETHASONE [Suspect]
     Dosage: 2.8571 MILLIGRAM
     Route: 065
     Dates: start: 20120504, end: 20120509
  6. AUGMENTIN '125' [Concomitant]
     Dosage: 2 TABLET
     Route: 048
     Dates: start: 20110124, end: 20110131
  7. TRAMADOL HYDROCHLORIDE [Concomitant]
     Dosage: 1 TAB
     Route: 048
     Dates: start: 20110124, end: 20110321
  8. MGO [Concomitant]
     Indication: CONSTIPATION
     Route: 048
     Dates: start: 20120217, end: 20120201
  9. TRANDATE [Concomitant]
     Indication: HYPERTENSION
     Dosage: 25MG/5ML/AMP 2MG
     Route: 041
     Dates: start: 20120217, end: 20120221
  10. REVLIMID [Suspect]
     Route: 048
     Dates: start: 20120302
  11. DEXAMETHASONE [Suspect]
     Route: 065
     Dates: start: 20110422
  12. MEGEST [Concomitant]
     Dosage: 40MG/1ML 120ML/BTL 2ML
     Route: 048
  13. REVLIMID [Suspect]
     Dosage: 10 MILLIGRAM
     Route: 048
     Dates: start: 20120203, end: 20120210
  14. PROCTOSEDYL [Concomitant]
     Route: 065
  15. ULTRACET [Concomitant]
     Dosage: 1 TABLET
     Route: 048
  16. REVLIMID [Suspect]
     Indication: MULTIPLE MYELOMA
     Dosage: 10 MILLIGRAM
     Route: 048
     Dates: start: 20110422
  17. TRAMADOL HYDROCHLORIDE [Concomitant]
     Dosage: 1 TAB
     Route: 048
     Dates: start: 20101231, end: 20110121
  18. ESTAZOLAM [Concomitant]
     Indication: INSOMNIA
     Dosage: 2 MILLIGRAM
     Route: 048
     Dates: start: 20120219, end: 20120224
  19. MUCOSOLVAN [Concomitant]
     Route: 048
     Dates: start: 20120217, end: 20120224
  20. CYCLOPHOSPHAMIDE [Interacting]
     Dosage: 50 MILLIGRAM
     Route: 048
     Dates: start: 20120607

REACTIONS (1)
  - TONGUE NEOPLASM MALIGNANT STAGE UNSPECIFIED [None]
